FAERS Safety Report 17220073 (Version 1)
Quarter: 2019Q4

REPORT INFORMATION
  Report Type: Spontaneous
  Country: IT (occurrence: IT)
  Receive Date: 20191231
  Receipt Date: 20191231
  Transmission Date: 20200122
  Serious: Yes (Other)
  Sender: FDA-Public Use
  Company Number: IT-AMGEN-ITANI2019215546

PATIENT
  Age: 25 Year
  Sex: Female
  Weight: 60 kg

DRUGS (2)
  1. AMGEVITA [Suspect]
     Active Substance: ADALIMUMAB
     Indication: CROHN^S DISEASE
     Dosage: 80 MILLIGRAM, CYCLICAL
     Route: 058
     Dates: start: 20190606, end: 20191211
  2. INTESTICORT [Concomitant]
     Indication: CROHN^S DISEASE
     Dosage: 3 MILLIGRAM
     Route: 048
     Dates: start: 20191016, end: 20191211

REACTIONS (2)
  - Therapeutic response shortened [Recovering/Resolving]
  - Crohn^s disease [Recovering/Resolving]

NARRATIVE: CASE EVENT DATE: 20191211
